FAERS Safety Report 10064305 (Version 2)
Quarter: 2014Q2

REPORT INFORMATION
  Report Type: Spontaneous
  Country: US (occurrence: US)
  Receive Date: 20140408
  Receipt Date: 20140616
  Transmission Date: 20141212
  Serious: Yes (Other)
  Sender: FDA-Public Use
  Company Number: US-JNJFOC-20140401350

PATIENT
  Age: 66 Year
  Sex: Female
  Weight: 90.72 kg

DRUGS (2)
  1. ROGAINE FOR MEN E.S. FOAM 5% [Suspect]
     Route: 061
  2. ROGAINE FOR MEN E.S. FOAM 5% [Suspect]
     Indication: HAIR GROWTH ABNORMAL
     Dosage: HALF A CAPFUL
     Route: 061
     Dates: start: 20140328, end: 20140329

REACTIONS (2)
  - Atrial fibrillation [Recovered/Resolved]
  - Wrong patient received medication [Unknown]
